FAERS Safety Report 5825442-9 (Version None)
Quarter: 2008Q3

REPORT INFORMATION
  Report Type: 
  Country: None (occurrence: None)
  Receive Date: 20080725
  Receipt Date: 20080725
  Transmission Date: 20090109
  Serious: Yes (Other)
  Sender: FDA-Public Use
  Company Number: None

PATIENT
  Age: 32 Year
  Sex: Female
  Weight: 73.0291 kg

DRUGS (1)
  1. LAMICTAL [Suspect]
     Indication: BIPOLAR DISORDER
     Dosage: 25 MG, 50, 100 MG ONCE DAILY PO
     Route: 048
     Dates: start: 20080623, end: 20080724

REACTIONS (2)
  - FORMICATION [None]
  - PRURITUS [None]
